FAERS Safety Report 7926758-2 (Version None)
Quarter: 2011Q4

REPORT INFORMATION
  Report Type: 
  Country: None (occurrence: None)
  Receive Date: 20111118
  Receipt Date: 20111111
  Transmission Date: 20120403
  Serious: Yes (Hospitalization)
  Sender: FDA-Public Use
  Company Number: AU-JNJFOC-20111105787

PATIENT
  Sex: Male

DRUGS (6)
  1. MONOPRIL [Concomitant]
     Route: 065
  2. DURAGESIC-100 [Suspect]
     Indication: BACK PAIN
     Route: 062
     Dates: start: 20090807, end: 20090901
  3. MOVIPREP [Concomitant]
     Route: 065
  4. ASPIRIN [Concomitant]
     Route: 065
  5. MONOPLUS (AUSTRALIA) [Concomitant]
     Route: 065
  6. ATACAND [Concomitant]
     Route: 065

REACTIONS (4)
  - NAUSEA [None]
  - RESTLESS LEGS SYNDROME [None]
  - SOMNOLENCE [None]
  - LIMB DISCOMFORT [None]
